FAERS Safety Report 6133083-1 (Version None)
Quarter: 2009Q1

REPORT INFORMATION
  Report Type: 
  Country: None (occurrence: None)
  Receive Date: 20090326
  Receipt Date: 20090317
  Transmission Date: 20090719
  Serious: Yes (Other)
  Sender: FDA-Public Use
  Company Number: US-AMGEN-QUU338866

PATIENT
  Sex: Female

DRUGS (1)
  1. ENBREL [Suspect]
     Indication: RHEUMATOID ARTHRITIS
     Dates: start: 20080702

REACTIONS (9)
  - EPISTAXIS [None]
  - HAEMATEMESIS [None]
  - MUSCULOSKELETAL STIFFNESS [None]
  - NAUSEA [None]
  - ORAL HERPES [None]
  - PAIN [None]
  - PRODUCTIVE COUGH [None]
  - SPUTUM DISCOLOURED [None]
  - VOMITING [None]
